FAERS Safety Report 15485701 (Version 1)
Quarter: 2018Q4

REPORT INFORMATION
  Report Type: Spontaneous
  Country: IR (occurrence: IR)
  Receive Date: 20181010
  Receipt Date: 20181010
  Transmission Date: 20190205
  Serious: Yes (Other)
  Sender: FDA-Public Use
  Company Number: IR-BEH-2018095647

PATIENT
  Sex: Female

DRUGS (2)
  1. FIBROGAMMIN P [Suspect]
     Active Substance: FACTOR XIII CONCENTRATE (HUMAN)
     Indication: PROPHYLAXIS
  2. FIBROGAMMIN P [Suspect]
     Active Substance: FACTOR XIII CONCENTRATE (HUMAN)
     Indication: FACTOR XIII DEFICIENCY
     Dosage: UNK
     Route: 065
     Dates: start: 2009

REACTIONS (1)
  - Abortion [Unknown]
